FAERS Safety Report 5955906-9 (Version None)
Quarter: 2008Q4

REPORT INFORMATION
  Report Type: 
  Country: None (occurrence: None)
  Receive Date: 20081113
  Receipt Date: 20081106
  Transmission Date: 20090506
  Serious: Yes (Hospitalization, Other)
  Sender: FDA-Public Use
  Company Number: TAP2008Q00957

PATIENT
  Age: 73 Year
  Sex: Female

DRUGS (1)
  1. PREVACID [Suspect]
     Indication: DRUG USE FOR UNKNOWN INDICATION
     Dosage: 30 MG (30 MG, 1 IN 1 D), PER ORAL
     Route: 048
     Dates: start: 20081024, end: 20081001

REACTIONS (2)
  - FALL [None]
  - SYNCOPE [None]
